FAERS Safety Report 7113606-6 (Version None)
Quarter: 2010Q4

REPORT INFORMATION
  Report Type: 
  Country: None (occurrence: None)
  Receive Date: 20101119
  Receipt Date: 20101108
  Transmission Date: 20110411
  Serious: Yes (Hospitalization)
  Sender: FDA-Public Use
  Company Number: US-ASTRAZENECA-2010SE52818

PATIENT
  Age: 50 Year
  Sex: Female

DRUGS (2)
  1. SEROQUEL XR [Suspect]
     Indication: SCHIZOAFFECTIVE DISORDER
     Route: 048
  2. PRILOSEC [Concomitant]

REACTIONS (4)
  - DRUG DOSE OMISSION [None]
  - HOSPITALISATION [None]
  - URINARY INCONTINENCE [None]
  - WEIGHT INCREASED [None]
